FAERS Safety Report 18069525 (Version 1)
Quarter: 2020Q3

REPORT INFORMATION
  Report Type: Other
  Country: CA (occurrence: CA)
  Receive Date: 20200726
  Receipt Date: 20200726
  Transmission Date: 20201103
  Serious: Yes (Hospitalization, Other)
  Sender: FDA-Public Use
  Company Number: CA-APOTEX-2020AP014196

PATIENT
  Age: 41 Year
  Sex: Female

DRUGS (3)
  1. CYCLOBENZAPRINE. [Suspect]
     Active Substance: CYCLOBENZAPRINE
     Indication: PRODUCT USED FOR UNKNOWN INDICATION
     Dosage: UNK
     Route: 065
  2. GILENYA [Suspect]
     Active Substance: FINGOLIMOD HYDROCHLORIDE
     Indication: PRODUCT USED FOR UNKNOWN INDICATION
     Dosage: UNK
     Route: 048
  3. DESOXIMETASONE. [Suspect]
     Active Substance: DESOXIMETASONE
     Indication: PRODUCT USED FOR UNKNOWN INDICATION
     Dosage: UNK
     Route: 065

REACTIONS (8)
  - Erythema [Recovered/Resolved]
  - Muscle spasms [Recovered/Resolved]
  - Asthenia [Recovered/Resolved]
  - Multiple sclerosis relapse [Recovered/Resolved]
  - Alopecia [Recovered/Resolved]
  - Paraesthesia [Recovered/Resolved]
  - Fatigue [Recovered/Resolved]
  - Rash [Recovered/Resolved]
